FAERS Safety Report 17913036 (Version 1)
Quarter: 2020Q2

REPORT INFORMATION
  Report Type: Spontaneous
  Country: US (occurrence: US)
  Receive Date: 20200618
  Receipt Date: 20200618
  Transmission Date: 20200714
  Serious: No
  Sender: FDA-Public Use
  Company Number: US-SHIRE-US202019868

PATIENT
  Sex: Female
  Weight: 79.37 kg

DRUGS (3)
  1. GAMMAGARD [Suspect]
     Active Substance: HUMAN IMMUNOGLOBULIN G
     Dosage: UNK, 1X A MONTH
     Route: 042
     Dates: start: 201909
  2. GAMMAGARD [Suspect]
     Active Substance: HUMAN IMMUNOGLOBULIN G
     Indication: IMMUNODEFICIENCY COMMON VARIABLE
     Dosage: UNK, 1X A MONTH
     Route: 042
     Dates: start: 201909
  3. GAMMAGARD [Suspect]
     Active Substance: HUMAN IMMUNOGLOBULIN G
     Dosage: UNK, 1X A MONTH
     Route: 042
     Dates: start: 201909

REACTIONS (7)
  - Respiratory tract infection viral [Unknown]
  - Burns second degree [Unknown]
  - Malaise [Unknown]
  - Subcutaneous abscess [Unknown]
  - Viral infection [Unknown]
  - Pain [Unknown]
  - Fatigue [Unknown]
